FAERS Safety Report 9321399 (Version 1)
Quarter: 2013Q2

REPORT INFORMATION
  Report Type: Spontaneous
  Country: IT (occurrence: IT)
  Receive Date: 20130531
  Receipt Date: 20130531
  Transmission Date: 20140414
  Serious: Yes (Hospitalization)
  Sender: FDA-Public Use
  Company Number: IT-SANOFI-AVENTIS-2013SA054574

PATIENT
  Age: 12 Month
  Sex: Male

DRUGS (1)
  1. DDAVP [Suspect]
     Indication: DIABETES INSIPIDUS
     Route: 045
     Dates: start: 20130422, end: 20130422

REACTIONS (2)
  - Hypotonia [Recovering/Resolving]
  - Tremor [Recovering/Resolving]
